FAERS Safety Report 7334021-6 (Version None)
Quarter: 2011Q1

REPORT INFORMATION
  Report Type: 
  Country: None (occurrence: None)
  Receive Date: 20110301
  Receipt Date: 20110301
  Transmission Date: 20110831
  Serious: No
  Sender: FDA-Public Use
  Company Number: None

PATIENT
  Sex: Male

DRUGS (1)
  1. TAMSULOSIN HCL [Suspect]
     Indication: MICTURITION URGENCY
     Dosage: 0.4 MG INCREASED BID P.O (047)
     Route: 048

REACTIONS (4)
  - PRODUCT SUBSTITUTION ISSUE [None]
  - POLLAKIURIA [None]
  - CONDITION AGGRAVATED [None]
  - MICTURITION URGENCY [None]
